FAERS Safety Report 14437008 (Version 3)
Quarter: 2020Q3

REPORT INFORMATION
  Report Type: Other
  Country: AU (occurrence: AU)
  Receive Date: 20180125
  Receipt Date: 20200917
  Transmission Date: 20201102
  Serious: Yes (Other)
  Sender: FDA-Public Use
  Company Number: AU-ROCHE-2058097

PATIENT

DRUGS (2)
  1. BEVACIZUMAB. [Suspect]
     Active Substance: BEVACIZUMAB
     Indication: NEOVASCULAR AGE-RELATED MACULAR DEGENERATION
     Dosage: 100MG/4ML ? 0014068
     Route: 050
  2. RANIBIZUMAB. [Suspect]
     Active Substance: RANIBIZUMAB
     Indication: NEOVASCULAR AGE-RELATED MACULAR DEGENERATION
     Route: 050

REACTIONS (5)
  - Endophthalmitis [Unknown]
  - Off label use [Unknown]
  - Suspected transmission of an infectious agent via product [Unknown]
  - Non-infectious endophthalmitis [Unknown]
  - Intentional product use issue [Unknown]
